FAERS Safety Report 17571992 (Version 6)
Quarter: 2020Q3

REPORT INFORMATION
  Report Type: Spontaneous
  Country: US (occurrence: US)
  Receive Date: 20200323
  Receipt Date: 20200730
  Transmission Date: 20201102
  Serious: No
  Sender: FDA-Public Use
  Company Number: US-STRONGBRIDGE BIOPHARMA-2020-STR-000076

PATIENT
  Age: 41 Year
  Sex: Female

DRUGS (6)
  1. KEVEYIS [Suspect]
     Active Substance: DICHLORPHENAMIDE
     Dosage: 50 MG, BID
     Dates: start: 20200328
  2. KEVEYIS [Suspect]
     Active Substance: DICHLORPHENAMIDE
     Dosage: 50 MG, BID
     Dates: start: 20200328
  3. PEPCID [Concomitant]
     Active Substance: FAMOTIDINE
     Indication: PRODUCT USED FOR UNKNOWN INDICATION
     Dosage: UNK
     Dates: start: 202003
  4. REGLAN [Concomitant]
     Active Substance: METOCLOPRAMIDE HYDROCHLORIDE
     Indication: PRODUCT USED FOR UNKNOWN INDICATION
     Dosage: UNK
     Dates: start: 202003
  5. KEVEYIS [Suspect]
     Active Substance: DICHLORPHENAMIDE
     Indication: FAMILIAL PERIODIC PARALYSIS
     Dosage: 50 MG, QD
     Route: 048
     Dates: start: 20200310, end: 20200327
  6. AMITIZA [Concomitant]
     Active Substance: LUBIPROSTONE
     Indication: PRODUCT USED FOR UNKNOWN INDICATION
     Dosage: UNK
     Dates: start: 202003

REACTIONS (27)
  - Muscle tightness [Recovering/Resolving]
  - Balance disorder [Recovering/Resolving]
  - Disease recurrence [Unknown]
  - Confusional state [Recovering/Resolving]
  - Disease recurrence [Unknown]
  - Dizziness [Unknown]
  - Dysphagia [Unknown]
  - Confusional state [Recovering/Resolving]
  - Eye movement disorder [Unknown]
  - Fall [Recovering/Resolving]
  - Eye movement disorder [Recovered/Resolved]
  - Feeling abnormal [Recovering/Resolving]
  - Head titubation [Recovering/Resolving]
  - Drug titration error [Unknown]
  - Speech disorder [Unknown]
  - Muscular weakness [Unknown]
  - Muscular weakness [Unknown]
  - Frustration tolerance decreased [Recovering/Resolving]
  - Neck pain [Unknown]
  - Dizziness [Recovering/Resolving]
  - Seizure [Recovered/Resolved]
  - Headache [Not Recovered/Not Resolved]
  - Malaise [Recovered/Resolved]
  - Disease recurrence [Recovered/Resolved]
  - Condition aggravated [Unknown]
  - Balance disorder [Recovering/Resolving]
  - Dyspnoea [Unknown]

NARRATIVE: CASE EVENT DATE: 20200316
